FAERS Safety Report 6184147-8 (Version None)
Quarter: 2009Q2

REPORT INFORMATION
  Report Type: 
  Country: None (occurrence: None)
  Receive Date: 20090506
  Receipt Date: 20090506
  Transmission Date: 20091009
  Serious: Yes (Other)
  Sender: FDA-Public Use
  Company Number: None

PATIENT
  Age: 24 Year
  Sex: Male
  Weight: 68.0396 kg

DRUGS (6)
  1. EFFEXOR [Suspect]
     Indication: DEPRESSION
     Dates: start: 20070901, end: 20071201
  2. EFFEXOR [Suspect]
     Indication: OBSESSIVE-COMPULSIVE DISORDER
     Dates: start: 20070901, end: 20071201
  3. EFFEXOR [Suspect]
     Indication: SOCIAL PHOBIA
     Dates: start: 20070901, end: 20071201
  4. EFFEXOR [Suspect]
     Indication: DEPRESSION
     Dates: start: 20040101, end: 20090505
  5. EFFEXOR [Suspect]
     Indication: OBSESSIVE-COMPULSIVE DISORDER
     Dates: start: 20040101, end: 20090505
  6. EFFEXOR [Suspect]
     Indication: SOCIAL PHOBIA
     Dates: start: 20040101, end: 20090505

REACTIONS (4)
  - ABNORMAL BEHAVIOUR [None]
  - DRUG INEFFECTIVE [None]
  - FEAR [None]
  - PERSONALITY CHANGE [None]
